FAERS Safety Report 5942187-5 (Version None)
Quarter: 2008Q4

REPORT INFORMATION
  Report Type: 
  Country: None (occurrence: None)
  Receive Date: 20081104
  Receipt Date: 20081104
  Transmission Date: 20090506
  Serious: No
  Sender: FDA-Public Use
  Company Number: None

PATIENT
  Age: 57 Year
  Sex: Male

DRUGS (1)
  1. DASATINIB [Suspect]
     Indication: CHRONIC MYELOID LEUKAEMIA
     Dosage: 50 MG BID PO
     Route: 048
     Dates: start: 20070702

REACTIONS (8)
  - ABDOMINAL PAIN [None]
  - BALANCE DISORDER [None]
  - CHAPPED LIPS [None]
  - INITIAL INSOMNIA [None]
  - INSOMNIA [None]
  - NAUSEA [None]
  - TREMOR [None]
  - VOMITING [None]
